FAERS Safety Report 23158851 (Version 1)
Quarter: 2023Q4

REPORT INFORMATION
  Report Type: Spontaneous
  Country: US (occurrence: US)
  Receive Date: 20231108
  Receipt Date: 20231108
  Transmission Date: 20240110
  Serious: Yes (Other)
  Sender: FDA-Public Use
  Company Number: US-SANDOZ-SDZ2023US051770

PATIENT
  Age: 71 Year

DRUGS (3)
  1. EXELON [Suspect]
     Active Substance: RIVASTIGMINE TARTRATE
     Indication: Product used for unknown indication
     Dosage: 1.5 MG, BID
     Route: 065
  2. EXELON PATCH [Suspect]
     Active Substance: RIVASTIGMINE
     Indication: Product used for unknown indication
     Route: 065
  3. EXELON PATCH [Suspect]
     Active Substance: RIVASTIGMINE
     Indication: Product used for unknown indication
     Route: 065

REACTIONS (5)
  - Suicidal ideation [Unknown]
  - Sensitive skin [Unknown]
  - Depression [Unknown]
  - Product use issue [Unknown]
  - Drug ineffective [Unknown]
